FAERS Safety Report 8326032-9 (Version None)
Quarter: 2012Q2

REPORT INFORMATION
  Report Type: 
  Country: None (occurrence: None)
  Receive Date: 20120501
  Receipt Date: 20110503
  Transmission Date: 20120825
  Serious: No
  Sender: FDA-Public Use
  Company Number: US-SANOFI-AVENTIS-2011SA031126

PATIENT
  Age: 75 Year
  Sex: Female

DRUGS (7)
  1. LANTUS [Suspect]
     Indication: TYPE 2 DIABETES MELLITUS
     Dosage: DOSE:15 UNIT(S)
     Route: 058
     Dates: start: 20100802
  2. SOLOSTAR [Suspect]
     Indication: TYPE 2 DIABETES MELLITUS
     Dates: start: 20100728
  3. REPAGLINIDE [Concomitant]
  4. VITAMIN B-12 [Concomitant]
  5. SOLOSTAR [Suspect]
     Dates: start: 20100802
  6. FOLIC ACID [Concomitant]
  7. APIDRA [Suspect]
     Indication: TYPE 2 DIABETES MELLITUS
     Dosage: DOSE:5 UNIT(S)
     Route: 058
     Dates: start: 20100728

REACTIONS (5)
  - HYPOAESTHESIA [None]
  - BREATH ODOUR [None]
  - BREAST DISCOMFORT [None]
  - PAIN [None]
  - HEADACHE [None]
